FAERS Safety Report 23227127 (Version 1)
Quarter: 2023Q4

REPORT INFORMATION
  Report Type: Spontaneous
  Country: NL (occurrence: NL)
  Receive Date: 20231124
  Receipt Date: 20231124
  Transmission Date: 20240110
  Serious: Yes (Death)
  Sender: FDA-Public Use
  Company Number: None

PATIENT
  Age: 76 Year
  Sex: Female
  Weight: 58 kg

DRUGS (10)
  1. PACLITAXEL [Suspect]
     Active Substance: PACLITAXEL
     Indication: Oesophageal carcinoma
     Dosage: ACCORDING TO CROSS SCHEME, BRAND NAME NOT SPECIFIED
     Dates: start: 20230426, end: 20230607
  2. MIDAZOLAM HYDROCHLORIDE [Concomitant]
     Active Substance: MIDAZOLAM HYDROCHLORIDE
     Indication: Product used for unknown indication
     Dosage: BRAND NAME NOT SPECIFIED
  3. PROPOFOL [Concomitant]
     Active Substance: PROPOFOL
     Indication: Product used for unknown indication
     Dosage: BRAND NAME NOT SPECIFIED
  4. OMEPRAZOLE [Concomitant]
     Active Substance: OMEPRAZOLE
     Indication: Product used for unknown indication
     Dosage: BRAND NAME NOT SPECIFIED
  5. FENTANYL [Concomitant]
     Active Substance: FENTANYL\FENTANYL CITRATE
     Indication: Product used for unknown indication
     Dosage: BRAND NAME NOT SPECIFIED
  6. CAPTOPRIL [Concomitant]
     Active Substance: CAPTOPRIL
     Indication: Product used for unknown indication
     Dosage: BRAND NAME NOT SPECIFIED
  7. SULFAMETHOXAZOLE\TRIMETHOPRIM [Concomitant]
     Active Substance: SULFAMETHOXAZOLE\TRIMETHOPRIM
     Indication: Product used for unknown indication
     Dosage: 5760 MILLIGRAM DAILY; 1920MG 3X DAILY, BRAND NAME NOT SPECIFIED, FORM STRENGTH : 160/800MG
  8. NADROPARIN CALCIUM [Concomitant]
     Active Substance: NADROPARIN CALCIUM
     Indication: Product used for unknown indication
     Dosage: FORM STRENGTH : 2850IE/0.3ML (9500IE/ML) WWSP
  9. OXAZEPAM [Concomitant]
     Active Substance: OXAZEPAM
     Indication: Product used for unknown indication
     Dosage: 5 MG PER DAY IF NECESSARY, BRAND NAME NOT SPECIFIED
  10. PREDNISOLONE [Concomitant]
     Active Substance: PREDNISOLONE
     Indication: Product used for unknown indication
     Dosage: BRAND NAME NOT SPECIFIED

REACTIONS (1)
  - Interstitial lung disease [Fatal]
